FAERS Safety Report 17285903 (Version 1)
Quarter: 2020Q1

REPORT INFORMATION
  Report Type: Spontaneous
  Country: US (occurrence: US)
  Receive Date: 20191230
  Receipt Date: 20191230
  Transmission Date: 20200409
  Serious: No
  Sender: FDA-Public Use
  Company Number: None

PATIENT
  Age: 45 Year
  Sex: Female

DRUGS (1)
  1. VOTRIENT [Suspect]
     Active Substance: PAZOPANIB HYDROCHLORIDE
     Dosage: ?          OTHER DOSE:200-400MG;?
     Route: 048
     Dates: start: 20191210

REACTIONS (1)
  - Chest pain [None]

NARRATIVE: CASE EVENT DATE: 20191230
